FAERS Safety Report 16059065 (Version 6)
Quarter: 2019Q2

REPORT INFORMATION
  Report Type: Spontaneous
  Country: DE (occurrence: DE)
  Receive Date: 20190311
  Receipt Date: 20190527
  Transmission Date: 20190711
  Serious: Yes (Death, Other)
  Sender: FDA-Public Use
  Company Number: PHHY2019DE052236

PATIENT
  Age: 57 Year
  Sex: Male

DRUGS (19)
  1. BENDAMUSTINE [Suspect]
     Active Substance: BENDAMUSTINE
     Indication: CHRONIC LYMPHOCYTIC LEUKAEMIA
  2. FLUDARABINE [Suspect]
     Active Substance: FLUDARABINE PHOSPHATE
     Indication: CHRONIC LYMPHOCYTIC LEUKAEMIA
  3. BENDAMUSTINE [Suspect]
     Active Substance: BENDAMUSTINE
     Indication: IMMUNOSUPPRESSANT DRUG THERAPY
  4. RITUXIMAB. [Suspect]
     Active Substance: RITUXIMAB
     Indication: IMMUNOSUPPRESSANT DRUG THERAPY
  5. RITUXIMAB. [Suspect]
     Active Substance: RITUXIMAB
     Indication: CHRONIC LYMPHOCYTIC LEUKAEMIA
  6. DEXAMETHASONE. [Suspect]
     Active Substance: DEXAMETHASONE
     Indication: BONE MARROW TRANSPLANT
     Dosage: UNK
     Route: 065
  7. CISPLATIN. [Suspect]
     Active Substance: CISPLATIN
     Indication: BONE MARROW TRANSPLANT
     Dosage: UNK
     Route: 065
  8. CYTARABINE. [Suspect]
     Active Substance: CYTARABINE
     Indication: IMMUNOSUPPRESSION
  9. CYTARABINE. [Suspect]
     Active Substance: CYTARABINE
     Indication: CHRONIC LYMPHOCYTIC LEUKAEMIA
  10. CYTARABINE. [Suspect]
     Active Substance: CYTARABINE
     Indication: IMMUNOSUPPRESSANT DRUG THERAPY
  11. CISPLATIN. [Suspect]
     Active Substance: CISPLATIN
     Indication: IMMUNOSUPPRESSANT DRUG THERAPY
  12. BENDAMUSTINE [Suspect]
     Active Substance: BENDAMUSTINE
     Indication: BONE MARROW TRANSPLANT
     Dosage: CYCLIC
     Route: 042
  13. RITUXIMAB. [Suspect]
     Active Substance: RITUXIMAB
     Indication: BONE MARROW TRANSPLANT
     Dosage: UNK
     Route: 065
  14. CYTARABINE. [Suspect]
     Active Substance: CYTARABINE
     Indication: BONE MARROW TRANSPLANT
     Dosage: UNK
     Route: 065
  15. FLUDARABINE [Suspect]
     Active Substance: FLUDARABINE PHOSPHATE
     Indication: BONE MARROW TRANSPLANT
     Dosage: UNK
     Route: 065
  16. DEXAMETHASONE. [Suspect]
     Active Substance: DEXAMETHASONE
     Indication: CHRONIC LYMPHOCYTIC LEUKAEMIA
  17. FLUDARABINE [Suspect]
     Active Substance: FLUDARABINE PHOSPHATE
     Indication: IMMUNOSUPPRESSANT DRUG THERAPY
  18. DEXAMETHASONE. [Suspect]
     Active Substance: DEXAMETHASONE
     Indication: IMMUNOSUPPRESSANT DRUG THERAPY
  19. CISPLATIN. [Suspect]
     Active Substance: CISPLATIN
     Indication: CHRONIC LYMPHOCYTIC LEUKAEMIA

REACTIONS (8)
  - Gastroenteritis sapovirus [Fatal]
  - Diarrhoea [Fatal]
  - Viral infection [Fatal]
  - Off label use [Fatal]
  - Condition aggravated [Fatal]
  - Neutropenic sepsis [Fatal]
  - Pneumonia bacterial [Fatal]
  - Product use in unapproved indication [Unknown]
